FAERS Safety Report 16003349 (Version 1)
Quarter: 2019Q1

REPORT INFORMATION
  Report Type: Spontaneous
  Country: AU (occurrence: AU)
  Receive Date: 20190226
  Receipt Date: 20190226
  Transmission Date: 20190418
  Serious: Yes (Other)
  Sender: FDA-Public Use
  Company Number: AU-009507513-1804AUS008297

PATIENT

DRUGS (1)
  1. ELOCON [Suspect]
     Active Substance: MOMETASONE FUROATE
     Indication: ECZEMA
     Dosage: STRENGTH: 1 MG IN 1 G
     Route: 061

REACTIONS (14)
  - Alopecia [Unknown]
  - Dermatitis [Unknown]
  - Feeling cold [Unknown]
  - Skin exfoliation [Unknown]
  - Vision blurred [Unknown]
  - Wound secretion [Unknown]
  - Insomnia [Unknown]
  - Neuralgia [Unknown]
  - Drug ineffective [Unknown]
  - Madarosis [Unknown]
  - Steroid withdrawal syndrome [Unknown]
  - Pruritus [Not Recovered/Not Resolved]
  - Rash [Unknown]
  - Rebound eczema [Unknown]

NARRATIVE: CASE EVENT DATE: 20140815
